FAERS Safety Report 4778976-2 (Version None)
Quarter: 2005Q3

REPORT INFORMATION
  Report Type: 
  Country: None (occurrence: None)
  Receive Date: 20050922
  Receipt Date: 20050907
  Transmission Date: 20060218
  Serious: Yes (Other)
  Sender: FDA-Public Use
  Company Number: 107538ISR

PATIENT
  Age: 71 Year
  Sex: Female

DRUGS (3)
  1. METHOTREXATE [Suspect]
     Dosage: 25 MILLIGRAM QW, SUBCUTANEOUS
     Route: 058
     Dates: start: 19910101
  2. REMICADE [Suspect]
     Dates: start: 20030401
  3. HUMIRA [Suspect]
     Dates: start: 20030801

REACTIONS (1)
  - NON-HODGKIN'S LYMPHOMA [None]
